FAERS Safety Report 7881025-0 (Version None)
Quarter: 2011Q4

REPORT INFORMATION
  Report Type: 
  Country: None (occurrence: None)
  Receive Date: 20111101
  Receipt Date: 20110602
  Transmission Date: 20120403
  Serious: No
  Sender: FDA-Public Use
  Company Number: US-AMGEN-USASP2011028526

PATIENT
  Age: 57 Year

DRUGS (1)
  1. ENBREL [Suspect]
     Indication: PSORIATIC ARTHROPATHY
     Dosage: 50 MG, QWK
     Route: 058

REACTIONS (4)
  - INJECTION SITE HAEMATOMA [None]
  - INJECTION SITE SWELLING [None]
  - SINUS HEADACHE [None]
  - INJECTION SITE PRURITUS [None]
